FAERS Safety Report 21821550 (Version 3)
Quarter: 2023Q2

REPORT INFORMATION
  Report Type: Report from Study
  Country: US (occurrence: US)
  Receive Date: 20230105
  Receipt Date: 20230511
  Transmission Date: 20230721
  Serious: Yes (Other)
  Sender: FDA-Public Use
  Company Number: US-ABBVIE-4257935

PATIENT
  Age: 69 Year
  Sex: Male

DRUGS (3)
  1. IMBRUVICA [Suspect]
     Active Substance: IBRUTINIB
     Indication: Chronic lymphocytic leukaemia
     Route: 048
     Dates: start: 20210119
  2. VITAMIN B COMPLEX [Concomitant]
     Active Substance: CYANOCOBALAMIN\DEXPANTHENOL\NIACINAMIDE\PYRIDOXINE HYDROCHLORIDE\RIBOFLAVIN 5^-PHOSPHATE SODIUM\THIA
     Indication: Product used for unknown indication
  3. TYLENOL [Suspect]
     Active Substance: ACETAMINOPHEN
     Indication: Product used for unknown indication
     Route: 065

REACTIONS (13)
  - Renal mass [Unknown]
  - Prostate cancer [Unknown]
  - Night sweats [Unknown]
  - Urinary incontinence [Unknown]
  - Back pain [Unknown]
  - Bacterial test [Unknown]
  - Renal function test abnormal [Unknown]
  - Night sweats [Unknown]
  - Blood pressure abnormal [Unknown]
  - Muscle spasms [Unknown]
  - Nocturia [Unknown]
  - Chronic kidney disease [Unknown]
  - Drug ineffective [Unknown]

NARRATIVE: CASE EVENT DATE: 20230301
